FAERS Safety Report 15056767 (Version 1)
Quarter: 2018Q2

REPORT INFORMATION
  Report Type: Spontaneous
  Country: US (occurrence: US)
  Receive Date: 20180604
  Receipt Date: 20180604
  Transmission Date: 20180711
  Serious: No
  Sender: FDA-Public Use
  Company Number: None

PATIENT
  Sex: Male
  Weight: 102.06 kg

DRUGS (1)
  1. IRBESARTAN, 150MG MG [Suspect]
     Active Substance: IRBESARTAN
     Indication: HYPERTENSION
     Route: 048
     Dates: start: 20180423, end: 20180604

REACTIONS (4)
  - Drug ineffective [None]
  - Headache [None]
  - Product substitution issue [None]
  - Blood pressure increased [None]
